FAERS Safety Report 4865779-3 (Version None)
Quarter: 2005Q4

REPORT INFORMATION
  Report Type: 
  Country: None (occurrence: None)
  Receive Date: 20051220
  Receipt Date: 20051212
  Transmission Date: 20060501
  Serious: Yes (Hospitalization)
  Sender: FDA-Public Use
  Company Number: 2005167546

PATIENT
  Age: 89 Year
  Sex: Female
  Weight: 60 kg

DRUGS (9)
  1. AMLODIPINE [Suspect]
     Indication: CARDIAC DISORDER
     Dosage: 10 MG (10 MG, 1 IN 1 D), ORAL
     Route: 048
  2. PAROXETINE (PAROXETINE) [Suspect]
     Indication: DYSTHYMIC DISORDER
     Dosage: 20 MG (20 MG, 1 IN 1 D), ORAL
     Route: 048
     Dates: end: 20041212
  3. SINTROM [Suspect]
     Indication: ATRIAL FLUTTER
     Dosage: 4 MG (4 MG, 1 IN 1 D), ORAL
     Route: 048
  4. SINTROM [Suspect]
     Indication: CARDIAC FIBRILLATION
     Dosage: 4 MG (4 MG, 1 IN 1 D), ORAL
     Route: 048
  5. FUROSEMIDE [Suspect]
     Indication: CARDIAC DISORDER
     Dosage: 40 MG (40 MG, 1 IN 1 D), ORAL
     Route: 048
     Dates: end: 20041215
  6. CORDARONE [Suspect]
     Indication: CARDIAC DISORDER
     Dosage: 200 MG (200 MG, 1 IN 1 D), ORAL
     Route: 048
     Dates: end: 20041225
  7. RAMIPRIL [Suspect]
     Indication: CARDIAC DISORDER
     Dosage: 5 MG (5 MG, 1 IN 1 D), ORAL
     Route: 048
  8. POTASSIUM CHLORIDE [Concomitant]
  9. VASTAREL (TRIMETAZIDINE HYDROCHLORIDE) [Concomitant]

REACTIONS (3)
  - CARDIOMEGALY [None]
  - HYPONATRAEMIA [None]
  - PULMONARY FIBROSIS [None]
